FAERS Safety Report 23690173 (Version 1)
Quarter: 2024Q2

REPORT INFORMATION
  Report Type: Spontaneous
  Country: FR (occurrence: FR)
  Receive Date: 20240401
  Receipt Date: 20240401
  Transmission Date: 20240715
  Serious: Yes (Death, Other)
  Sender: FDA-Public Use
  Company Number: FR-AFSSAPS-CN2024000311

PATIENT
  Age: 71 Year
  Sex: Female

DRUGS (2)
  1. ALPRAZOLAM [Suspect]
     Active Substance: ALPRAZOLAM
     Indication: Anxiety
     Dosage: 0.25 MILLIGRAM
     Route: 048
     Dates: start: 20230717, end: 20230717
  2. NALBUPHINE [Suspect]
     Active Substance: NALBUPHINE
     Indication: Perioperative analgesia
     Dosage: 20 MILLIGRAM
     Route: 042
     Dates: start: 20230717, end: 20230717

REACTIONS (1)
  - Death [Fatal]

NARRATIVE: CASE EVENT DATE: 20230718
